FAERS Safety Report 5514534-X (Version None)
Quarter: 2007Q4

REPORT INFORMATION
  Report Type: 
  Country: None (occurrence: None)
  Receive Date: 20071113
  Receipt Date: 20071106
  Transmission Date: 20080405
  Serious: Yes (Hospitalization)
  Sender: FDA-Public Use
  Company Number: A0678117A

PATIENT
  Age: 74 Year
  Sex: Male

DRUGS (5)
  1. ADVAIR DISKUS 100/50 [Suspect]
     Indication: CHRONIC OBSTRUCTIVE PULMONARY DISEASE
     Dosage: 1PUFF TWICE PER DAY
     Route: 055
     Dates: start: 20000101
  2. VERAPAMIL [Concomitant]
  3. TERAZOSIN HCL [Concomitant]
  4. AVODART [Concomitant]
     Dates: start: 20070801
  5. ALLOPURINOL [Concomitant]

REACTIONS (3)
  - CONDITION AGGRAVATED [None]
  - DYSURIA [None]
  - PROSTATOMEGALY [None]
